FAERS Safety Report 5925147-X (Version None)
Quarter: 2008Q4

REPORT INFORMATION
  Report Type: 
  Country: None (occurrence: None)
  Receive Date: 20081021
  Receipt Date: 20081009
  Transmission Date: 20090506
  Serious: Yes (Other)
  Sender: FDA-Public Use
  Company Number: US-ROCHE-409560

PATIENT
  Sex: Female

DRUGS (16)
  1. PEGASYS [Suspect]
     Indication: HEPATITIS C
     Route: 058
     Dates: start: 20041029, end: 20050701
  2. PEGASYS [Suspect]
     Dosage: EXPIRY DATE FOR BATCH B1093-01:30 JUNE 2010; FORMULATION: PRE-FILLED SYRINGE.
     Route: 058
     Dates: start: 20080316
  3. COPEGUS [Suspect]
     Indication: HEPATITIS C
     Route: 048
     Dates: start: 20041029, end: 20050701
  4. RIBAVIRIN [Suspect]
     Indication: HEPATITIS C
     Route: 065
     Dates: start: 20080316
  5. PEG-INTRON [Suspect]
     Indication: HEPATITIS C
     Route: 065
  6. RIBASPHERE [Suspect]
     Indication: HEPATITIS C
     Route: 065
  7. ONDANSETRON [Concomitant]
  8. EFFEXOR [Concomitant]
  9. ATIVAN [Concomitant]
  10. VITAMINS NOS [Concomitant]
  11. LECITHIN [Concomitant]
  12. CALCIUM [Concomitant]
  13. VITAMIN E [Concomitant]
  14. STROVITE [Concomitant]
  15. NEULASTA [Concomitant]
  16. MAGNESIUM SULFATE [Concomitant]

REACTIONS (13)
  - DEPRESSION [None]
  - DIARRHOEA [None]
  - DIZZINESS [None]
  - EAR PAIN [None]
  - FACIAL PALSY [None]
  - FATIGUE [None]
  - INSOMNIA [None]
  - NASOPHARYNGITIS [None]
  - NAUSEA [None]
  - OROPHARYNGEAL PAIN [None]
  - VOMITING [None]
  - WEIGHT DECREASED [None]
  - WHITE BLOOD CELL COUNT DECREASED [None]
